FAERS Safety Report 7077649-3 (Version None)
Quarter: 2010Q4

REPORT INFORMATION
  Report Type: 
  Country: None (occurrence: None)
  Receive Date: 20101101
  Receipt Date: 20101018
  Transmission Date: 20110411
  Serious: Yes (Death, Hospitalization)
  Sender: FDA-Public Use
  Company Number: CA-AMGEN-CANSP2010000293

PATIENT

DRUGS (15)
  1. ENBREL [Suspect]
     Dosage: 1
     Route: 058
  2. PREDNISONE [Suspect]
     Dosage: 10 MG, QD
     Route: 048
  3. ACETAMINOPHEN [Concomitant]
  4. ASPIRIN [Concomitant]
  5. ATROVENT [Concomitant]
  6. CALCIUM + VITAMIN D [Concomitant]
  7. COZAAR [Concomitant]
  8. FLOVENT [Concomitant]
  9. FOSAMAX [Concomitant]
  10. FUROSEMIDE [Concomitant]
  11. LIPITOR [Concomitant]
  12. PANTOLOC                           /01263201/ [Concomitant]
  13. SALBUTAMOL [Concomitant]
  14. SERTRALINE HYDROCHLORIDE [Concomitant]
  15. ZOPICLONE [Concomitant]

REACTIONS (8)
  - DEATH [None]
  - DYSPNOEA [None]
  - INCREASED UPPER AIRWAY SECRETION [None]
  - INTERSTITIAL LUNG DISEASE [None]
  - OEDEMA PERIPHERAL [None]
  - PNEUMONIA [None]
  - PRODUCTIVE COUGH [None]
  - RESPIRATORY DISTRESS [None]
